FAERS Safety Report 12356551 (Version 2)
Quarter: 2016Q2

REPORT INFORMATION
  Report Type: Spontaneous
  Country: EG (occurrence: EG)
  Receive Date: 20160511
  Receipt Date: 20160517
  Transmission Date: 20160815
  Serious: Yes (Death, Hospitalization)
  Sender: FDA-Public Use
  Company Number: PHHY2016EG063598

PATIENT
  Age: 9 Year
  Sex: Male

DRUGS (2)
  1. CICLOSPORIN [Suspect]
     Active Substance: CYCLOSPORINE
     Indication: PITYRIASIS LICHENOIDES ET VARIOLIFORMIS ACUTA
     Dosage: UNK
     Route: 065
  2. IMMUNOGLOBULIN I.V [Suspect]
     Active Substance: HUMAN IMMUNOGLOBULIN G
     Indication: PITYRIASIS LICHENOIDES ET VARIOLIFORMIS ACUTA
     Dosage: UNK
     Route: 042

REACTIONS (7)
  - Renal impairment [Unknown]
  - Multiple organ dysfunction syndrome [Fatal]
  - Pseudomonal sepsis [Unknown]
  - Pityriasis lichenoides et varioliformis acuta [Unknown]
  - Sepsis [Fatal]
  - Product use issue [Unknown]
  - Pseudomonas infection [Unknown]
